FAERS Safety Report 5564978-5 (Version None)
Quarter: 2007Q4

REPORT INFORMATION
  Report Type: 
  Country: None (occurrence: None)
  Receive Date: 20071218
  Receipt Date: 20071210
  Transmission Date: 20080405
  Serious: Yes (Hospitalization)
  Sender: FDA-Public Use
  Company Number: B0500055A

PATIENT
  Age: 84 Year
  Sex: Female

DRUGS (6)
  1. AUGMENTIN '125' [Suspect]
     Route: 048
     Dates: start: 20071019, end: 20071027
  2. CIFLOX [Suspect]
     Route: 048
     Dates: start: 20071019, end: 20071027
  3. LANZOR [Concomitant]
     Route: 065
  4. VALSARTAN AND HYDROCHLOROTHIAZIDE [Concomitant]
     Route: 065
  5. BEFIZAL [Concomitant]
     Route: 065
  6. NEXEN [Concomitant]
     Route: 065

REACTIONS (3)
  - BLOOD CREATININE INCREASED [None]
  - RASH MACULO-PAPULAR [None]
  - RENAL FAILURE ACUTE [None]
